FAERS Safety Report 16955116 (Version 1)
Quarter: 2019Q4

REPORT INFORMATION
  Report Type: Spontaneous
  Country: HK (occurrence: HK)
  Receive Date: 20191024
  Receipt Date: 20191024
  Transmission Date: 20200122
  Serious: Yes (Death, Hospitalization)
  Sender: FDA-Public Use
  Company Number: HK-ROCHE-2439877

PATIENT

DRUGS (7)
  1. TAXOL [Suspect]
     Active Substance: PACLITAXEL
     Dosage: 2 CYCLES
     Route: 065
     Dates: start: 20110708, end: 20110802
  2. AVASTIN [Suspect]
     Active Substance: BEVACIZUMAB
     Indication: OVARIAN CANCER
     Dosage: 6 CYCLES
     Route: 065
     Dates: start: 20110301, end: 20110617
  3. AVASTIN [Suspect]
     Active Substance: BEVACIZUMAB
     Dosage: 2 CYCLES
     Route: 065
     Dates: start: 20110708, end: 20110802
  4. AVASTIN [Suspect]
     Active Substance: BEVACIZUMAB
     Dosage: MAINTENANCE (28 CYCLES)
     Route: 065
     Dates: start: 20110824, end: 20130327
  5. TAXOL [Suspect]
     Active Substance: PACLITAXEL
     Indication: OVARIAN CANCER
     Dosage: 6 CYCLES
     Route: 065
     Dates: start: 20110301, end: 20110617
  6. CARBOPLATIN. [Suspect]
     Active Substance: CARBOPLATIN
     Indication: OVARIAN CANCER
     Dosage: 6 CYCLES
     Route: 065
     Dates: start: 20110301, end: 20110617
  7. CARBOPLATIN. [Suspect]
     Active Substance: CARBOPLATIN
     Dosage: 2 CYCLES
     Route: 065
     Dates: start: 20110708, end: 20110802

REACTIONS (6)
  - Rhinitis allergic [Unknown]
  - Disease recurrence [Unknown]
  - Rash [Unknown]
  - Dry skin [Unknown]
  - Proteinuria [Unknown]
  - Therapy partial responder [Recovered/Resolved]

NARRATIVE: CASE EVENT DATE: 20110704
